FAERS Safety Report 24419570 (Version 1)
Quarter: 2024Q4

REPORT INFORMATION
  Report Type: Spontaneous
  Country: QA (occurrence: QA)
  Receive Date: 20241010
  Receipt Date: 20241010
  Transmission Date: 20250115
  Serious: Yes (Other)
  Sender: SANDOZ
  Company Number: QA-SANDOZ-SDZ2024QA085975

PATIENT

DRUGS (1)
  1. HYRIMOZ [Suspect]
     Active Substance: ADALIMUMAB-ADAZ
     Indication: Product used for unknown indication
     Dosage: EVERY OTHER WEEK FOR THE PAST TWO  MONTHS
     Route: 065

REACTIONS (1)
  - Intracranial pressure increased [Not Recovered/Not Resolved]
